FAERS Safety Report 8642250 (Version 3)
Quarter: 2013Q2

REPORT INFORMATION
  Report Type: Spontaneous
  Country: US (occurrence: US)
  Receive Date: 20120628
  Receipt Date: 20130524
  Transmission Date: 20140414
  Serious: Yes (Other)
  Sender: FDA-Public Use
  Company Number: US-US-EMD SERONO, INC.-7142345

PATIENT
  Sex: Female
  Weight: 60 kg

DRUGS (12)
  1. REBIF [Suspect]
     Indication: RELAPSING-REMITTING MULTIPLE SCLEROSIS
     Route: 058
     Dates: start: 20041220
  2. SYNTHROID [Concomitant]
     Indication: HYPOTHYROIDISM
  3. GABAPENTIN [Concomitant]
     Indication: TRIGEMINAL NEURALGIA
  4. WELLBUTRIN [Concomitant]
     Indication: DEPRESSION
  5. AMITRIPTYLINE [Concomitant]
     Indication: DEPRESSION
  6. AMITRIPTYLINE [Concomitant]
     Indication: PAIN
  7. IBUPROFEN [Concomitant]
     Indication: PREMEDICATION
     Dosage: 200 TO 400 MG
  8. COLACE [Concomitant]
     Indication: CONSTIPATION
  9. METAMUCIL [Concomitant]
     Indication: CONSTIPATION
  10. EFFEXOR                            /01233801/ [Concomitant]
     Indication: PRODUCT USED FOR UNKNOWN INDICATION
     Dates: start: 200312, end: 201212
  11. ARIMIDEX [Concomitant]
     Indication: BREAST CANCER
     Dates: start: 200309, end: 2008
  12. IMITREX                            /01044801/ [Concomitant]
     Indication: MIGRAINE

REACTIONS (8)
  - Type 2 diabetes mellitus [Recovering/Resolving]
  - Hot flush [Recovering/Resolving]
  - Cough [Not Recovered/Not Resolved]
  - Rhinorrhoea [Not Recovered/Not Resolved]
  - Muscle tightness [Not Recovered/Not Resolved]
  - Dry mouth [Not Recovered/Not Resolved]
  - Injection site bruising [Not Recovered/Not Resolved]
  - Pyrexia [Not Recovered/Not Resolved]
